FAERS Safety Report 6466910-9 (Version None)
Quarter: 2009Q4

REPORT INFORMATION
  Report Type: 
  Country: None (occurrence: None)
  Receive Date: 20091202
  Receipt Date: 20091120
  Transmission Date: 20100525
  Serious: Yes (Other)
  Sender: FDA-Public Use
  Company Number: JP-PFIZER INC-2009302408

PATIENT
  Age: 42 Year
  Sex: Male
  Weight: 61.5 kg

DRUGS (4)
  1. SUNITINIB MALATE [Suspect]
     Indication: GASTROINTESTINAL STROMAL TUMOUR
     Dosage: 50 MG, 1X/DAY
     Route: 048
     Dates: start: 20090423
  2. LOXONIN [Concomitant]
     Dosage: UNK
     Route: 048
     Dates: start: 20090520
  3. MARZULENE S [Concomitant]
     Dosage: UNK
     Route: 048
     Dates: start: 20090520
  4. MYSLEE [Concomitant]
     Dosage: UNK
     Route: 048
     Dates: start: 20090520

REACTIONS (2)
  - HYPERURICAEMIA [None]
  - NEUTROPHIL COUNT DECREASED [None]
